FAERS Safety Report 6083214-7 (Version None)
Quarter: 2009Q1

REPORT INFORMATION
  Report Type: 
  Country: None (occurrence: None)
  Receive Date: 20090219
  Receipt Date: 20090218
  Transmission Date: 20090719
  Serious: Yes (Death)
  Sender: FDA-Public Use
  Company Number: CA-JNJFOC-20090203511

PATIENT
  Sex: Male

DRUGS (9)
  1. DURAGESIC-100 [Suspect]
     Indication: DRUG USE FOR UNKNOWN INDICATION
     Route: 062
  2. FENTANYL TRANSDERMAL SYSTEM [Suspect]
     Indication: DRUG USE FOR UNKNOWN INDICATION
     Route: 062
  3. TRAMACET [Suspect]
     Indication: DRUG USE FOR UNKNOWN INDICATION
     Route: 048
  4. DETROL [Concomitant]
     Route: 065
  5. ACETYLSALICYLIC ACID [Concomitant]
     Route: 065
  6. MOTILIUM [Concomitant]
     Route: 065
  7. LOPRESSOR [Concomitant]
     Indication: HYPERTENSION
     Route: 065
  8. NEURONTIN [Concomitant]
     Route: 065
  9. SOFLAX [Concomitant]
     Route: 065

REACTIONS (8)
  - ABNORMAL DREAMS [None]
  - CARDIOVASCULAR DISORDER [None]
  - CONFUSIONAL STATE [None]
  - DYSPHAGIA [None]
  - MEMORY IMPAIRMENT [None]
  - NAUSEA [None]
  - VISION BLURRED [None]
  - VOMITING [None]
